FAERS Safety Report 14262437 (Version 2)
Quarter: 2018Q1

REPORT INFORMATION
  Report Type: Spontaneous
  Country: IT (occurrence: IT)
  Receive Date: 20171208
  Receipt Date: 20180326
  Transmission Date: 20180508
  Serious: Yes (Other)
  Sender: FDA-Public Use
  Company Number: IT-SUN PHARMACEUTICAL INDUSTRIES LTD-2017RR-155804

PATIENT
  Age: 28 Year
  Sex: Male

DRUGS (1)
  1. SERTRALINE [Suspect]
     Active Substance: SERTRALINE HYDROCHLORIDE
     Indication: ANXIETY
     Dosage: UNK
     Route: 065
     Dates: start: 20170718

REACTIONS (3)
  - Abdominal pain upper [Recovering/Resolving]
  - Anxiety [Recovering/Resolving]
  - Hot flush [Recovering/Resolving]

NARRATIVE: CASE EVENT DATE: 20170719
